FAERS Safety Report 15082226 (Version 2)
Quarter: 2018Q4

REPORT INFORMATION
  Report Type: Report from Study
  Country: US (occurrence: US)
  Receive Date: 20180628
  Receipt Date: 20181205
  Transmission Date: 20190204
  Serious: Yes (Hospitalization, Other)
  Sender: FDA-Public Use
  Company Number: US-THERATECHNOLOGIES, INC.-TH-2018-00281

PATIENT
  Age: 48 Year
  Sex: Female
  Weight: 136.1 kg

DRUGS (9)
  1. ALBUTEROL                          /00139501/ [Concomitant]
     Active Substance: ALBUTEROL
     Dosage: UNK, PRN
  2. AMLODIPINE [Concomitant]
     Active Substance: AMLODIPINE BESYLATE
  3. EGRIFTA [Suspect]
     Active Substance: TESAMORELIN
     Indication: NON-ALCOHOLIC STEATOHEPATITIS
     Dosage: 2 MG MILLIGRAM(S), DAILY DOSE
     Route: 058
  4. OTHER THERAPEUTIC PRODUCTS [Concomitant]
     Active Substance: UNSPECIFIED INGREDIENT
  5. RILPIVIRINE [Concomitant]
     Active Substance: RILPIVIRINE
     Dosage: UNK
  6. TYLENOL [Concomitant]
     Active Substance: ACETAMINOPHEN
     Dosage: UNK, PRN
  7. IBUPROFEN. [Concomitant]
     Active Substance: IBUPROFEN
     Dosage: UNK, PRN
  8. EGRIFTA [Suspect]
     Active Substance: TESAMORELIN
     Indication: HIV INFECTION
  9. MONTELUKAST [Concomitant]
     Active Substance: MONTELUKAST SODIUM
     Dosage: UNK

REACTIONS (1)
  - Urosepsis [Recovered/Resolved]

NARRATIVE: CASE EVENT DATE: 20180511
